FAERS Safety Report 6132239-1 (Version None)
Quarter: 2009Q1

REPORT INFORMATION
  Report Type: 
  Country: None (occurrence: None)
  Receive Date: 20090325
  Receipt Date: 20090320
  Transmission Date: 20090719
  Serious: Yes (Hospitalization)
  Sender: FDA-Public Use
  Company Number: US-PFIZER INC-2009186220

PATIENT
  Sex: Female
  Weight: 79.819 kg

DRUGS (22)
  1. NAPROXEN [Suspect]
     Indication: OSTEOARTHRITIS
     Dosage: UNK
     Route: 048
     Dates: start: 20080320
  2. BLINDED *PLACEBO [Suspect]
     Indication: OSTEOARTHRITIS
     Dosage: UNK
     Route: 048
     Dates: start: 20080320
  3. BLINDED CELECOXIB [Suspect]
     Indication: OSTEOARTHRITIS
     Dosage: UNK
     Route: 048
     Dates: start: 20080320
  4. IBUPROFEN TABLETS [Suspect]
     Indication: OSTEOARTHRITIS
     Dosage: UNK
     Route: 048
     Dates: start: 20080320
  5. NAPROXEN [Suspect]
     Dosage: UNK
     Route: 048
     Dates: start: 20080320
  6. NEXIUM [Concomitant]
     Dosage: 40 MG, 1X/DAY
     Route: 048
     Dates: start: 20080320
  7. ZOLPIDEM TARTRATE [Concomitant]
     Dosage: UNK
     Route: 048
     Dates: start: 20071112
  8. SYNTHROID [Concomitant]
     Dosage: UNK
     Route: 048
     Dates: start: 19960123
  9. ISOSORBIDE MONONITRATE [Concomitant]
     Dosage: UNK
     Route: 048
     Dates: start: 20061009
  10. AVALIDE [Concomitant]
     Dosage: UNK
     Route: 048
     Dates: start: 20040917
  11. SIMVASTATIN [Concomitant]
     Dosage: UNK
     Route: 048
     Dates: start: 20040414
  12. ATENOLOL [Concomitant]
     Dosage: UNK
     Route: 048
     Dates: start: 20040521
  13. ESCITALOPRAM [Concomitant]
     Dosage: UNK
     Route: 048
     Dates: start: 20041018
  14. ENDAL-HD [Concomitant]
     Dosage: UNK
     Route: 048
     Dates: start: 20050303
  15. LORCET-HD [Concomitant]
     Dosage: UNK
     Route: 048
     Dates: start: 20060614
  16. FISH OIL [Concomitant]
     Dosage: UNK
     Route: 048
     Dates: start: 20061009
  17. ALPRAZOLAM [Concomitant]
     Dosage: UNK
     Route: 048
     Dates: start: 20060828
  18. ISRADIPINE [Concomitant]
     Dosage: UNK
     Route: 048
     Dates: start: 20070618
  19. CARISOPRODOL [Concomitant]
     Dosage: UNK
     Route: 048
     Dates: start: 20071022
  20. CALCIUM MAGNESIUM ZINC [Concomitant]
     Dosage: UNK
     Route: 048
     Dates: start: 20080129
  21. FIORICET [Concomitant]
     Dosage: UNK
     Route: 048
     Dates: start: 20080129
  22. ACETYLSALICYLIC ACID [Concomitant]
     Dosage: UNK
     Route: 048
     Dates: start: 20040505

REACTIONS (1)
  - ROAD TRAFFIC ACCIDENT [None]
